FAERS Safety Report 18513567 (Version 3)
Quarter: 2020Q4

REPORT INFORMATION
  Report Type: Report from Study
  Country: US (occurrence: US)
  Receive Date: 20201117
  Receipt Date: 20201124
  Transmission Date: 20210114
  Serious: Yes (Other)
  Sender: FDA-Public Use
  Company Number: US-AGIOS-2011US02264

PATIENT

DRUGS (2)
  1. TIBSOVO [Suspect]
     Active Substance: IVOSIDENIB
     Indication: ACUTE MYELOID LEUKAEMIA
     Dosage: 250 MILLIGRAM, 2 TABLETS (500 MG) DAILY
     Route: 048
     Dates: start: 20201027, end: 20201119
  2. TIBSOVO [Suspect]
     Active Substance: IVOSIDENIB
     Dosage: 250 MILLIGRAM, QD
     Route: 048

REACTIONS (6)
  - Electrocardiogram QT prolonged [Unknown]
  - Terminal state [Unknown]
  - Platelet count decreased [Unknown]
  - Off label use [Unknown]
  - Anaemia [Unknown]
  - Diarrhoea [Unknown]
